FAERS Safety Report 9848914 (Version 1)
Quarter: 2014Q1

REPORT INFORMATION
  Report Type: Spontaneous
  Country: US (occurrence: None)
  Receive Date: 20140122
  Receipt Date: 20140122
  Transmission Date: 20141002
  Serious: Yes (Death)
  Sender: FDA-Public Use
  Company Number: B0958958A

PATIENT
  Age: 54 Year
  Sex: Female

DRUGS (9)
  1. DIPHENHYDRAMINE (FORMULATION UNKNOWN) (GENERIC) (DIPHENHYDRAMINE) [Suspect]
     Route: 048
  2. HYDROCODONE + PARACETAMOL [Suspect]
     Route: 048
  3. MUSCLE RELAXANT [Suspect]
     Route: 048
  4. VENLAFAXINE HYDROCHLORIDE (FORMULATION UNKNOWN) (GENERIC) (VENLAFAXINE HYDROCHLORIDE) [Suspect]
     Route: 048
  5. MORPHINE [Suspect]
     Route: 048
  6. QUETIAPINE (FORMULATION UNKNOWN) (GENERIC) (QUETIAPINE FUMARATE) [Suspect]
     Route: 048
  7. ALPRAZOLAM [Suspect]
     Route: 048
  8. LAMOTRIGINE (FORMULATION UNKNOWN) (GENERIC) (LAMOTRIGINE) [Suspect]
     Route: 048
  9. GABAPENTIN (FORMULATION UNKNOWN) (GENERIC) (GABAPENTIN) [Suspect]
     Route: 048

REACTIONS (2)
  - Death [None]
  - Cardio-respiratory arrest [None]
